FAERS Safety Report 6046190-9 (Version None)
Quarter: 2009Q1

REPORT INFORMATION
  Report Type: 
  Country: None (occurrence: None)
  Receive Date: 20090121
  Receipt Date: 20090121
  Transmission Date: 20090719
  Serious: Yes (Other)
  Sender: FDA-Public Use
  Company Number: None

PATIENT
  Sex: Male
  Weight: 61.2356 kg

DRUGS (1)
  1. LAMICTAL [Suspect]
     Indication: GRAND MAL CONVULSION
     Dosage: 150 2 X DAY CURRENTLY STILL USING
     Dates: start: 20060101, end: 20081201

REACTIONS (3)
  - ABNORMAL DREAMS [None]
  - ANOREXIA [None]
  - NIGHTMARE [None]
